FAERS Safety Report 6037928-5 (Version None)
Quarter: 2009Q1

REPORT INFORMATION
  Report Type: 
  Country: None (occurrence: None)
  Receive Date: 20090113
  Receipt Date: 20090113
  Transmission Date: 20090719
  Serious: Yes (Other)
  Sender: FDA-Public Use
  Company Number: None

PATIENT
  Age: 39 Year
  Sex: Male
  Weight: 102.0593 kg

DRUGS (1)
  1. BYSTOLIC [Suspect]
     Indication: MITRAL VALVE PROLAPSE
     Dosage: 5MG DAILY PO
     Route: 048
     Dates: start: 20080924, end: 20081231

REACTIONS (4)
  - BLISTER [None]
  - BLOOD TRIGLYCERIDES INCREASED [None]
  - DIARRHOEA [None]
  - INSOMNIA [None]
